FAERS Safety Report 10723894 (Version 2)
Quarter: 2015Q1

REPORT INFORMATION
  Report Type: Spontaneous
  Country: US (occurrence: None)
  Receive Date: 20150114
  Receipt Date: 20150122
  Transmission Date: 20150721
  Serious: Yes (Other)
  Sender: FDA-Public Use
  Company Number: ADR-2007-3588

PATIENT
  Sex: Female

DRUGS (2)
  1. ORAL BACLOFEN 20 MG TID [Concomitant]
  2. BACLOFEN. [Suspect]
     Active Substance: BACLOFEN
     Indication: MUSCLE SPASTICITY

REACTIONS (19)
  - Blister [None]
  - Muscle spasticity [None]
  - Hypertonia [None]
  - Gait disturbance [None]
  - Urticaria [None]
  - Back pain [None]
  - Pruritus [None]
  - Musculoskeletal pain [None]
  - Device dislocation [None]
  - Headache [None]
  - Rash [None]
  - Hypotonia [None]
  - Myofascial pain syndrome [None]
  - Road traffic accident [None]
  - Device kink [None]
  - Dizziness [None]
  - Neck pain [None]
  - Migraine [None]
  - Feeling abnormal [None]
